FAERS Safety Report 6063042-9 (Version None)
Quarter: 2009Q1

REPORT INFORMATION
  Report Type: 
  Country: None (occurrence: None)
  Receive Date: 20090203
  Receipt Date: 20081014
  Transmission Date: 20090719
  Serious: Yes (Death)
  Sender: FDA-Public Use
  Company Number: US-MERCK-0809USA01968

PATIENT

DRUGS (3)
  1. ZOLINZA [Suspect]
     Indication: T-CELL LYMPHOMA
     Route: 048
  2. DOXIL [Concomitant]
     Indication: T-CELL LYMPHOMA
     Route: 048
  3. BEXAROTENE [Concomitant]
     Indication: T-CELL LYMPHOMA
     Route: 048

REACTIONS (2)
  - DEATH [None]
  - SKIN NECROSIS [None]
